FAERS Safety Report 24132224 (Version 1)
Quarter: 2024Q3

REPORT INFORMATION
  Report Type: Spontaneous
  Country: SA (occurrence: SA)
  Receive Date: 20240724
  Receipt Date: 20240724
  Transmission Date: 20241016
  Serious: Yes (Other)
  Sender: MACLEODS
  Company Number: SA-MACLEODS PHARMA-MAC2024048364

PATIENT
  Age: 65 Year
  Sex: Female

DRUGS (6)
  1. ATORVASTATIN [Suspect]
     Active Substance: ATORVASTATIN
     Indication: Coronary artery disease
     Route: 065
  2. CIPROFLOXACIN [Suspect]
     Active Substance: CIPROFLOXACIN
     Indication: Pollakiuria
     Route: 065
  3. BISOPROLOL [Concomitant]
     Active Substance: BISOPROLOL\BISOPROLOL FUMARATE
     Indication: Coronary artery disease
     Route: 065
  4. ASPIRIN [Concomitant]
     Active Substance: ASPIRIN
     Indication: Coronary artery disease
     Route: 065
  5. TICAGRELOR [Concomitant]
     Active Substance: TICAGRELOR
     Indication: Coronary artery disease
     Route: 065
  6. PERINDOPRIL [Concomitant]
     Active Substance: PERINDOPRIL
     Indication: Coronary artery disease
     Route: 065

REACTIONS (8)
  - Myopathy [Recovered/Resolved]
  - Drug interaction [Recovered/Resolved]
  - Fall [Unknown]
  - Injury [Unknown]
  - Insomnia [Unknown]
  - Restlessness [Unknown]
  - Agitation [Unknown]
  - Fatigue [Unknown]
